FAERS Safety Report 6592697-5 (Version None)
Quarter: 2010Q1

REPORT INFORMATION
  Report Type: 
  Country: None (occurrence: None)
  Receive Date: 20100222
  Receipt Date: 20100210
  Transmission Date: 20100710
  Serious: Yes (Hospitalization)
  Sender: FDA-Public Use
  Company Number: 2007BI009154

PATIENT
  Age: 59 Year
  Sex: Female
  Weight: 78 kg

DRUGS (3)
  1. AVONEX [Suspect]
     Indication: MULTIPLE SCLEROSIS
     Route: 030
     Dates: start: 19991017, end: 20030101
  2. AVONEX [Suspect]
     Route: 030
     Dates: start: 20030101, end: 20070201
  3. AVONEX [Suspect]
     Route: 030

REACTIONS (3)
  - SPINAL DEFORMITY [None]
  - SPINAL FRACTURE [None]
  - SURGERY [None]
